FAERS Safety Report 8138382-X (Version None)
Quarter: 2012Q1

REPORT INFORMATION
  Report Type: 
  Country: None (occurrence: None)
  Receive Date: 20120215
  Receipt Date: 20120131
  Transmission Date: 20120608
  Serious: Yes (Hospitalization)
  Sender: FDA-Public Use
  Company Number: NL-ROCHE-1035426

PATIENT
  Sex: Male
  Weight: 61 kg

DRUGS (8)
  1. MABTHERA [Suspect]
     Indication: DIFFUSE LARGE B-CELL LYMPHOMA
     Route: 042
     Dates: start: 20111108
  2. COLCHICINE [Concomitant]
     Route: 048
     Dates: start: 20110101, end: 20111230
  3. VINCRISTINE [Suspect]
     Indication: DIFFUSE LARGE B-CELL LYMPHOMA
     Route: 042
     Dates: start: 20111108
  4. DOXORUBICIN HCL [Suspect]
     Indication: DIFFUSE LARGE B-CELL LYMPHOMA
     Route: 042
     Dates: start: 20111108
  5. PANTOPRAZOLE [Concomitant]
     Route: 048
     Dates: start: 20110101, end: 20111230
  6. CYCLOPHOSPHAMIDE [Suspect]
     Indication: DIFFUSE LARGE B-CELL LYMPHOMA
     Route: 042
     Dates: start: 20111108
  7. PARACETAMOL [Concomitant]
     Indication: PAIN
     Dosage: 500
     Dates: start: 20111115, end: 20111230
  8. PREDNISONE TAB [Suspect]
     Indication: DIFFUSE LARGE B-CELL LYMPHOMA
     Route: 048
     Dates: start: 20111108

REACTIONS (1)
  - PULMONARY EMBOLISM [None]
